FAERS Safety Report 7217028-9 (Version None)
Quarter: 2010Q4

REPORT INFORMATION
  Report Type: 
  Country: None (occurrence: None)
  Receive Date: 20101230
  Receipt Date: 20101221
  Transmission Date: 20110411
  Serious: Yes (Other)
  Sender: FDA-Public Use
  Company Number: UTKAB-10-0747

PATIENT
  Sex: Female
  Weight: 82 kg

DRUGS (10)
  1. ABRAXANE [Suspect]
     Indication: PRODUCT USED FOR UNKNOWN INDICATION
  2. CHLORPHENIRAMINE MALEATE [Concomitant]
  3. DEXAMETHASONE [Concomitant]
  4. GABAPENTIN [Concomitant]
  5. NULYTELY [Concomitant]
  6. OMEPRAZOLE [Concomitant]
  7. OXYCODONE [Concomitant]
  8. PARACETAMOL [Concomitant]
  9. RANITIDINE [Concomitant]
  10. SERTRALINE [Concomitant]

REACTIONS (2)
  - HYPERSENSITIVITY [None]
  - WHEEZING [None]
